FAERS Safety Report 4779969-1 (Version None)
Quarter: 2005Q3

REPORT INFORMATION
  Report Type: 
  Country: None (occurrence: None)
  Receive Date: 20050927
  Receipt Date: 20050918
  Transmission Date: 20060218
  Serious: Yes (Hospitalization)
  Sender: FDA-Public Use
  Company Number: AU-GLAXOSMITHKLINE-B0394832A

PATIENT
  Sex: Male

DRUGS (1)
  1. ZYBAN [Suspect]
     Route: 048

REACTIONS (3)
  - DEPRESSION [None]
  - EATING DISORDER [None]
  - SLEEP DISORDER [None]
